FAERS Safety Report 8243178-4 (Version None)
Quarter: 2012Q1

REPORT INFORMATION
  Report Type: 
  Country: None (occurrence: None)
  Receive Date: 20120329
  Receipt Date: 20120328
  Transmission Date: 20120608
  Serious: Yes (Death)
  Sender: FDA-Public Use
  Company Number: GR-ABBOTT-12P-066-0919323-00

PATIENT
  Age: 79 Year
  Sex: Male
  Weight: 69 kg

DRUGS (1)
  1. ZEMPLAR [Suspect]
     Indication: RENAL FAILURE CHRONIC
     Dosage: 15MCG TOTAL DOSE
     Route: 042
     Dates: start: 20111024, end: 20120319

REACTIONS (1)
  - CARDIAC ARREST [None]
